FAERS Safety Report 13661361 (Version 1)
Quarter: 2017Q2

REPORT INFORMATION
  Report Type: Spontaneous
  Country: US (occurrence: US)
  Receive Date: 20170616
  Receipt Date: 20170616
  Transmission Date: 20170830
  Serious: No
  Sender: FDA-Public Use
  Company Number: US-US WORLDMEDS, LLC-USW201612-000861

PATIENT
  Age: 66 Year
  Sex: Male
  Weight: 88.45 kg

DRUGS (9)
  1. TIGAN [Concomitant]
     Active Substance: TRIMETHOBENZAMIDE HYDROCHLORIDE
  2. APOKYN [Suspect]
     Active Substance: APOMORPHINE HYDROCHLORIDE
     Indication: PARKINSON^S DISEASE
     Route: 058
     Dates: start: 201510
  3. ATENOL [Concomitant]
     Active Substance: ATENOLOL
  4. APORPASPATINE [Concomitant]
  5. RYTARY [Concomitant]
     Active Substance: CARBIDOPA\LEVODOPA
  6. PREVACID [Concomitant]
     Active Substance: LANSOPRAZOLE
  7. METFORMIN [Concomitant]
     Active Substance: METFORMIN HYDROCHLORIDE
  8. AZILECT [Concomitant]
     Active Substance: RASAGILINE MESYLATE
  9. ATENOL [Concomitant]
     Active Substance: ATENOLOL
     Dates: start: 20160806

REACTIONS (1)
  - Nausea [Recovered/Resolved]

NARRATIVE: CASE EVENT DATE: 20161128
